FAERS Safety Report 12979052 (Version 1)
Quarter: 2016Q4

REPORT INFORMATION
  Report Type: Spontaneous
  Country: US (occurrence: US)
  Receive Date: 20161128
  Receipt Date: 20161128
  Transmission Date: 20170207
  Serious: No
  Sender: FDA-Public Use
  Company Number: US-GE HEALTHCARE MEDICAL DIAGNOSTICS-OMPQ-PR-1609S-1714

PATIENT
  Age: 52 Year
  Sex: Female

DRUGS (8)
  1. GLUCOSAMINE [Concomitant]
     Active Substance: GLUCOSAMINE
  2. NAPROXEN. [Concomitant]
     Active Substance: NAPROXEN
  3. ZOLOFT [Concomitant]
     Active Substance: SERTRALINE HYDROCHLORIDE
  4. MOTRIN [Concomitant]
     Active Substance: IBUPROFEN
  5. MAGNESIUM CARBONATE [Concomitant]
     Active Substance: MAGNESIUM CARBONATE
  6. OMNIPAQUE [Suspect]
     Active Substance: IOHEXOL
     Indication: ABDOMINAL PAIN UPPER
     Route: 042
     Dates: start: 20160923, end: 20160923
  7. OMNIPAQUE [Suspect]
     Active Substance: IOHEXOL
     Indication: DIAGNOSTIC PROCEDURE
  8. HYDROXYZINE [Concomitant]
     Active Substance: HYDROXYZINE\HYDROXYZINE HYDROCHLORIDE

REACTIONS (3)
  - Eye irritation [Recovered/Resolved]
  - Sneezing [Recovered/Resolved]
  - Urticaria [Recovered/Resolved]

NARRATIVE: CASE EVENT DATE: 20160923
